FAERS Safety Report 18365651 (Version 1)
Quarter: 2020Q4

REPORT INFORMATION
  Report Type: Spontaneous
  Country: PT (occurrence: PT)
  Receive Date: 20201009
  Receipt Date: 20201009
  Transmission Date: 20210114
  Serious: Yes (Other)
  Sender: FDA-Public Use
  Company Number: PT-AMGEN-PRTSP2020159078

PATIENT
  Age: 49 Year
  Sex: Female

DRUGS (3)
  1. XGEVA [Suspect]
     Active Substance: DENOSUMAB
     Indication: BREAST CANCER
     Dosage: UNK UNK, QMO
     Route: 065
     Dates: start: 20170106, end: 20170512
  2. AZALIA [Concomitant]
     Active Substance: DESOGESTREL
     Dosage: UNK
  3. DOCETAXEL. [Suspect]
     Active Substance: DOCETAXEL
     Indication: BREAST CANCER FEMALE
     Dosage: UNK UNK, CYCLICAL
     Route: 065
     Dates: start: 20170106, end: 20170512

REACTIONS (6)
  - Dysgeusia [Unknown]
  - Fatigue [Unknown]
  - Alopecia [Unknown]
  - Neuropathy peripheral [Unknown]
  - Nail toxicity [Unknown]
  - Myalgia [Unknown]
